FAERS Safety Report 6601377-9 (Version None)
Quarter: 2010Q1

REPORT INFORMATION
  Report Type: 
  Country: None (occurrence: None)
  Receive Date: 20100224
  Receipt Date: 20100224
  Transmission Date: 20100710
  Serious: Yes (Life-Threatening, Hospitalization)
  Sender: FDA-Public Use
  Company Number: None

PATIENT
  Age: 42 Year
  Sex: Female
  Weight: 109.1 kg

DRUGS (1)
  1. YASMIN [Suspect]
     Indication: CONTRACEPTION
     Dosage: DAILY ORAL
     Route: 048
     Dates: start: 19910101, end: 20090401

REACTIONS (4)
  - HEPATIC ADENOMA [None]
  - LIVER DISORDER [None]
  - PULMONARY EMBOLISM [None]
  - THROMBOSIS [None]
